FAERS Safety Report 11093965 (Version 1)
Quarter: 2015Q2

REPORT INFORMATION
  Report Type: Spontaneous
  Country: US (occurrence: None)
  Receive Date: 20150428
  Receipt Date: 20150428
  Transmission Date: 20150821
  Serious: Yes (Hospitalization)
  Sender: FDA-Public Use
  Company Number: PHEH2014US018867

PATIENT
  Age: 32 Year

DRUGS (2)
  1. GILENYA [Suspect]
     Active Substance: FINGOLIMOD HYDROCHLORIDE
     Route: 048
  2. TYSABRI [Concomitant]
     Active Substance: NATALIZUMAB

REACTIONS (5)
  - Fall [None]
  - Asthenia [None]
  - Central nervous system lesion [None]
  - VIIth nerve paralysis [None]
  - Multiple sclerosis relapse [None]

NARRATIVE: CASE EVENT DATE: 20140512
